FAERS Safety Report 6977352-1 (Version None)
Quarter: 2010Q3

REPORT INFORMATION
  Report Type: 
  Country: None (occurrence: None)
  Receive Date: 20100910
  Receipt Date: 20100831
  Transmission Date: 20110219
  Serious: Yes (Other)
  Sender: FDA-Public Use
  Company Number: US-PFIZER INC-2010110063

PATIENT
  Sex: Male

DRUGS (12)
  1. NEURONTIN [Suspect]
  2. SITAGLIPTIN [Concomitant]
  3. FENOFIBRIC ACID [Concomitant]
  4. PLAVIX [Concomitant]
  5. COREG [Concomitant]
  6. DIGOXIN [Concomitant]
  7. CUMADIN [Concomitant]
  8. LASIX [Concomitant]
  9. PROSCAR [Concomitant]
  10. TAMSULOSIN HYDROCHLORIDE [Concomitant]
  11. FLEXERIL [Concomitant]
  12. PERCOCET [Concomitant]

REACTIONS (2)
  - MENTAL IMPAIRMENT [None]
  - MUSCULAR WEAKNESS [None]
